FAERS Safety Report 8593852-5 (Version None)
Quarter: 2012Q3

REPORT INFORMATION
  Report Type: 
  Country: None (occurrence: None)
  Receive Date: 20120814
  Receipt Date: 20120730
  Transmission Date: 20120928
  Serious: Yes (Death)
  Sender: FDA-Public Use
  Company Number: IT-WATSON-2012-13855

PATIENT
  Age: 51 Year
  Sex: Male

DRUGS (2)
  1. IBUPROFEN [Suspect]
     Indication: SUICIDE ATTEMPT
  2. IBUPROFEN [Suspect]
     Indication: INTENTIONAL OVERDOSE
     Dosage: 12 G, SINGLE
     Route: 048

REACTIONS (5)
  - INTENTIONAL OVERDOSE [None]
  - COMA [None]
  - HYPOTENSION [None]
  - METABOLIC ACIDOSIS [None]
  - RESPIRATORY DEPRESSION [None]
